FAERS Safety Report 17705465 (Version 10)
Quarter: 2020Q3

REPORT INFORMATION
  Report Type: Report from Study
  Country: AR (occurrence: AR)
  Receive Date: 20200424
  Receipt Date: 20200810
  Transmission Date: 20201102
  Serious: Yes (Life-Threatening, Hospitalization, Other)
  Sender: FDA-Public Use
  Company Number: AR-ACTELION-A-CH2020-201835

PATIENT
  Age: 38 Year
  Sex: Female
  Weight: 116 kg

DRUGS (5)
  1. UPTRAVI [Suspect]
     Active Substance: SELEXIPAG
     Indication: PULMONARY ARTERIAL HYPERTENSION
     Dosage: 200 MCG, BID
     Route: 048
  2. SILDENAFIL. [Concomitant]
     Active Substance: SILDENAFIL
  3. UPTRAVI [Suspect]
     Active Substance: SELEXIPAG
     Dosage: 400 MCG, BID
     Route: 048
     Dates: start: 20191101
  4. COLCHICINA [Concomitant]
     Active Substance: COLCHICINE
  5. MYCOPHENOLATE [Concomitant]
     Active Substance: MYCOPHENOLIC ACID

REACTIONS (31)
  - Nasopharyngitis [Unknown]
  - Arterial thrombosis [Unknown]
  - Cyanosis [Unknown]
  - Throat irritation [Unknown]
  - Cardiac failure [Unknown]
  - Pneumonia [Not Recovered/Not Resolved]
  - Vomiting [Unknown]
  - Swelling [Unknown]
  - Abdominal pain [Unknown]
  - Malaise [Unknown]
  - Cough [Unknown]
  - Oxygen saturation decreased [Not Recovered/Not Resolved]
  - Throat tightness [Unknown]
  - Dyspnoea [Unknown]
  - Productive cough [Unknown]
  - Headache [Unknown]
  - Pain in extremity [Unknown]
  - Diarrhoea [Unknown]
  - Abdominal discomfort [Unknown]
  - Pain [Unknown]
  - Transfusion [Unknown]
  - Blood pressure increased [Unknown]
  - Chest pain [Unknown]
  - Peripheral swelling [Unknown]
  - Fluid retention [Unknown]
  - Gastric disorder [Unknown]
  - Back pain [Unknown]
  - COVID-19 [Not Recovered/Not Resolved]
  - Muscle spasms [Unknown]
  - Hypotension [Unknown]
  - Fatigue [Unknown]

NARRATIVE: CASE EVENT DATE: 2020
